FAERS Safety Report 10524966 (Version 1)
Quarter: 2014Q4

REPORT INFORMATION
  Report Type: Spontaneous
  Country: US (occurrence: None)
  Receive Date: 20141015
  Receipt Date: 20141015
  Transmission Date: 20150528
  Serious: Yes (Disabling)
  Sender: FDA-Public Use
  Company Number: None

PATIENT
  Age: 50 Year
  Sex: Male
  Weight: 106.6 kg

DRUGS (1)
  1. ATORVASTATIN 20 MG SANDOZ [Suspect]
     Active Substance: ATORVASTATIN
     Indication: LIPIDS ABNORMAL
     Dosage: 1 TABLET, TAKEN BY MOUTH
     Route: 048
     Dates: start: 20131205, end: 20141006

REACTIONS (12)
  - Myalgia [None]
  - Feeling abnormal [None]
  - Impaired work ability [None]
  - Depression [None]
  - Speech disorder [None]
  - Poor quality sleep [None]
  - Dizziness [None]
  - Cognitive disorder [None]
  - Memory impairment [None]
  - Activities of daily living impaired [None]
  - Disturbance in attention [None]
  - Libido decreased [None]

NARRATIVE: CASE EVENT DATE: 20140101
